FAERS Safety Report 8008672-X (Version None)
Quarter: 2011Q4

REPORT INFORMATION
  Report Type: 
  Country: None (occurrence: None)
  Receive Date: 20111227
  Receipt Date: 20111219
  Transmission Date: 20120403
  Serious: Yes (Hospitalization, Other)
  Sender: FDA-Public Use
  Company Number: MX-MERCK-1112MEX00010

PATIENT
  Age: 47 Year
  Sex: Female
  Weight: 49 kg

DRUGS (6)
  1. CEFTAZIDIME [Concomitant]
     Indication: URINARY TRACT INFECTION
     Route: 065
  2. LEVOTHYROXINE SODIUM [Concomitant]
     Indication: HYPOTHYROIDISM
     Route: 048
  3. INSULIN [Concomitant]
     Indication: DIABETES MELLITUS
     Route: 065
  4. INVANZ [Suspect]
     Indication: URINARY TRACT INFECTION
     Route: 030
     Dates: start: 20111205, end: 20111205
  5. CAPTOPRIL [Concomitant]
     Indication: HYPERTENSION
     Route: 048
  6. LOSARTAN POTASSIUM [Concomitant]
     Indication: DIABETES MELLITUS
     Route: 048

REACTIONS (8)
  - HEADACHE [None]
  - BLOOD PRESSURE INCREASED [None]
  - DEAFNESS UNILATERAL [None]
  - HYPERGLYCAEMIA [None]
  - TACHYCARDIA [None]
  - TINNITUS [None]
  - MUSCULOSKELETAL STIFFNESS [None]
  - VERTIGO [None]
